FAERS Safety Report 5239034-6 (Version None)
Quarter: 2007Q1

REPORT INFORMATION
  Report Type: 
  Country: None (occurrence: None)
  Receive Date: 20061208
  Receipt Date: 20050621
  Transmission Date: 20070707
  Serious: Yes (Other)
  Sender: FDA-Public Use
  Company Number: 2005UW09460

PATIENT
  Sex: Male

DRUGS (2)
  1. CRESTOR [Suspect]
     Dosage: 5 MG
  2. AVODART [Suspect]

REACTIONS (3)
  - ALDOLASE INCREASED [None]
  - DRUG INTERACTION [None]
  - HEPATIC ENZYME ABNORMAL [None]
